FAERS Safety Report 24849673 (Version 2)
Quarter: 2025Q1

REPORT INFORMATION
  Report Type: Spontaneous
  Country: DE (occurrence: DE)
  Receive Date: 20250116
  Receipt Date: 20250215
  Transmission Date: 20250408
  Serious: Yes (Hospitalization, Other)
  Sender: AMGEN
  Company Number: DE-AMGEN-DEUSP2025004127

PATIENT
  Age: 70 Year
  Sex: Female

DRUGS (2)
  1. PROLIA [Suspect]
     Active Substance: DENOSUMAB
     Indication: Osteoporosis
     Dosage: UNK UNK, Q6MO
     Route: 065
  2. CALCIUM [Concomitant]
     Active Substance: CALCIUM
     Dosage: 100 MILLIGRAM, QD

REACTIONS (31)
  - Asthenia [Not Recovered/Not Resolved]
  - Bronchitis chronic [Unknown]
  - Lyme disease [Unknown]
  - Neuropathy peripheral [Unknown]
  - Carotid arteriosclerosis [Unknown]
  - Hypercholesterolaemia [Unknown]
  - Glucose tolerance impaired [Unknown]
  - Migraine [Unknown]
  - Musculoskeletal chest pain [Unknown]
  - Weight decreased [Unknown]
  - Osteomyelitis [Unknown]
  - Jaw operation [Unknown]
  - Dental care [Unknown]
  - Cerebral atrophy [Unknown]
  - Vascular encephalopathy [Unknown]
  - Tooth extraction [Unknown]
  - Tooth disorder [Unknown]
  - Jaw disorder [Not Recovered/Not Resolved]
  - Periodontal inflammation [Not Recovered/Not Resolved]
  - Rash [Not Recovered/Not Resolved]
  - Endodontic procedure [Unknown]
  - Gastric mucosa erythema [Unknown]
  - Adrenal mass [Unknown]
  - Osteopenia [Unknown]
  - Goitre [Unknown]
  - Sinus disorder [Unknown]
  - Blood creatinine decreased [Unknown]
  - Blood bilirubin increased [Unknown]
  - Eosinophil count decreased [Unknown]
  - Haemoglobin abnormal [Unknown]
  - Procedural pain [Not Recovered/Not Resolved]

NARRATIVE: CASE EVENT DATE: 20230101
